FAERS Safety Report 26201546 (Version 1)
Quarter: 2025Q4

REPORT INFORMATION
  Report Type: Spontaneous
  Country: US (occurrence: US)
  Receive Date: 20251226
  Receipt Date: 20251226
  Transmission Date: 20260118
  Serious: No
  Sender: PADAGIS
  Company Number: US-PADAGIS-2025PAD01576

PATIENT

DRUGS (1)
  1. MUPIROCIN [Suspect]
     Active Substance: MUPIROCIN
     Indication: Skin lesion
     Dosage: THREE TIMES DAILY
     Route: 061
     Dates: start: 20251215

REACTIONS (4)
  - Pollakiuria [Not Recovered/Not Resolved]
  - Presyncope [Unknown]
  - Fatigue [Unknown]
  - Product use in unapproved indication [Unknown]

NARRATIVE: CASE EVENT DATE: 20251215
